FAERS Safety Report 12011102 (Version 1)
Quarter: 2016Q1

REPORT INFORMATION
  Report Type: Report from Study
  Country: US (occurrence: US)
  Receive Date: 20160205
  Receipt Date: 20160205
  Transmission Date: 20160526
  Serious: Yes (Other)
  Sender: FDA-Public Use
  Company Number: US-ABBVIE-15K-163-1447149-00

PATIENT
  Age: 61 Year
  Sex: Female

DRUGS (1)
  1. HUMIRA [Suspect]
     Active Substance: ADALIMUMAB
     Indication: RHEUMATOID ARTHRITIS
     Route: 065
     Dates: start: 2010

REACTIONS (7)
  - Knee arthroplasty [Unknown]
  - Osteoarthritis [Not Recovered/Not Resolved]
  - Hip arthroplasty [Unknown]
  - Joint swelling [Recovered/Resolved]
  - Musculoskeletal pain [Unknown]
  - Hip arthroplasty [Unknown]
  - Knee arthroplasty [Unknown]

NARRATIVE: CASE EVENT DATE: 201107
